FAERS Safety Report 7900855-X (Version None)
Quarter: 2011Q4

REPORT INFORMATION
  Report Type: 
  Country: None (occurrence: None)
  Receive Date: 20111108
  Receipt Date: 20111108
  Transmission Date: 20120403
  Serious: Yes (Other)
  Sender: FDA-Public Use
  Company Number: None

PATIENT
  Age: 24 Year
  Sex: Female
  Weight: 61.234 kg

DRUGS (1)
  1. MUCINEX DM [Suspect]
     Indication: RESPIRATORY TRACT CONGESTION
     Dosage: 1 TABLET
     Route: 048
     Dates: start: 20111106, end: 20111106

REACTIONS (6)
  - FEELING ABNORMAL [None]
  - DIZZINESS [None]
  - PANIC ATTACK [None]
  - MYDRIASIS [None]
  - LOSS OF CONSCIOUSNESS [None]
  - LETHARGY [None]
